FAERS Safety Report 8521985-8 (Version None)
Quarter: 2012Q3

REPORT INFORMATION
  Report Type: 
  Country: None (occurrence: None)
  Receive Date: 20120719
  Receipt Date: 20120711
  Transmission Date: 20120928
  Serious: Yes (Hospitalization)
  Sender: FDA-Public Use
  Company Number: US-GENZYME-MOZO-1000729

PATIENT
  Sex: Female

DRUGS (3)
  1. MOZOBIL [Suspect]
     Indication: ACUTE MYELOID LEUKAEMIA
     Dosage: 240 MCG/KG, QOD (7 DOSES Q 28 DAYS)
     Route: 058
  2. NEUPOGEN [Concomitant]
     Indication: ACUTE MYELOID LEUKAEMIA
     Dosage: 10 MCG/KG, QOD, (7 DOSES Q 28 DAYS)
     Route: 058
  3. SORAFENIB [Concomitant]
     Indication: ACUTE MYELOID LEUKAEMIA
     Dosage: UNK
     Route: 048

REACTIONS (6)
  - PLATELET COUNT DECREASED [None]
  - WHITE BLOOD CELL COUNT DECREASED [None]
  - FEBRILE NEUTROPENIA [None]
  - PNEUMONIA [None]
  - ATELECTASIS [None]
  - PULMONARY FIBROSIS [None]
